FAERS Safety Report 21693818 (Version 1)
Quarter: 2022Q4

REPORT INFORMATION
  Report Type: Spontaneous
  Country: US (occurrence: None)
  Receive Date: 20221206
  Receipt Date: 20221206
  Transmission Date: 20230113
  Serious: Yes (Hospitalization)
  Sender: FDA-Public Use
  Company Number: None

PATIENT
  Age: 75 Year
  Sex: Female
  Weight: 92.08 kg

DRUGS (23)
  1. LENALIDOMIDE [Suspect]
     Active Substance: LENALIDOMIDE
     Indication: Plasma cell myeloma
     Dosage: 15MG  14D ON 7D OFF ORAL?
     Route: 048
     Dates: start: 202210
  2. BACTRIM [Concomitant]
  3. AUGMENTIN [Concomitant]
     Active Substance: AMOXICILLIN\CLAVULANATE POTASSIUM
  4. CACLIUM 600+D3 [Concomitant]
  5. COENZYME Q10 [Concomitant]
     Active Substance: DIETARY SUPPLEMENT\UBIDECARENONE
  6. CRESTOR [Concomitant]
     Active Substance: ROSUVASTATIN CALCIUM
  7. DARZALEX [Concomitant]
     Active Substance: DARATUMUMAB
  8. DEXAMETHASONE [Concomitant]
     Active Substance: DEXAMETHASONE
  9. EVENITY [Concomitant]
     Active Substance: ROMOSOZUMAB-AQQG
  10. MECLIZINE [Concomitant]
     Active Substance: MECLIZINE HYDROCHLORIDE
  11. METHOCARBAMOL [Concomitant]
     Active Substance: METHOCARBAMOL
  12. ONDANSETRON [Concomitant]
     Active Substance: ONDANSETRON
  13. PERCOCET [Concomitant]
     Active Substance: ACETAMINOPHEN\OXYCODONE HYDROCHLORIDE
  14. PREDNISONE [Concomitant]
     Active Substance: PREDNISONE
  15. PROMETHAZINE [Concomitant]
     Active Substance: PROMETHAZINE HYDROCHLORIDE
  16. ROSUVASTATIN [Concomitant]
     Active Substance: ROSUVASTATIN
  17. SYMBICORT [Concomitant]
     Active Substance: BUDESONIDE\FORMOTEROL FUMARATE DIHYDRATE
  18. VALTREX [Concomitant]
     Active Substance: VALACYCLOVIR HYDROCHLORIDE
  19. VITAMIN B12 [Concomitant]
     Active Substance: CYANOCOBALAMIN
  20. VELCADE [Concomitant]
     Active Substance: BORTEZOMIB
  21. VITAMIN B1 [Concomitant]
     Active Substance: THIAMINE HYDROCHLORIDE
  22. XARELTO [Concomitant]
     Active Substance: RIVAROXABAN
  23. ZINC [Concomitant]
     Active Substance: ZINC

REACTIONS (1)
  - Vertebroplasty [None]

NARRATIVE: CASE EVENT DATE: 20221118
